FAERS Safety Report 8822162 (Version 2)
Quarter: 2012Q4

REPORT INFORMATION
  Report Type: 
  Country: US (occurrence: US)
  Receive Date: 20121003
  Receipt Date: 20121016
  Transmission Date: 20130627
  Serious: Yes (Other)
  Sender: FDA-Public Use
  Company Number: US-AMGEN-USASP2012062348

PATIENT
  Age: 62 Year
  Sex: Female
  Weight: 85.71 kg

DRUGS (3)
  1. ENBREL [Suspect]
     Indication: PSORIATIC ARTHROPATHY
     Dosage: 25 mg, 2 times/wk
     Dates: start: 200406
  2. ENBREL [Suspect]
     Indication: PSORIASIS
  3. ALEVE [Concomitant]
     Indication: ARTHRITIS
     Dosage: UNK

REACTIONS (7)
  - Haemorrhagic anaemia [Recovered/Resolved]
  - Gastrointestinal haemorrhage [Recovered/Resolved]
  - Asthenia [Not Recovered/Not Resolved]
  - Blood pressure increased [Not Recovered/Not Resolved]
  - Skin lesion [Recovered/Resolved]
  - Scar [Not Recovered/Not Resolved]
  - Injection site bruising [Not Recovered/Not Resolved]
